FAERS Safety Report 13300401 (Version 1)
Quarter: 2017Q1

REPORT INFORMATION
  Report Type: Spontaneous
  Country: FR (occurrence: FR)
  Receive Date: 20170307
  Receipt Date: 20170307
  Transmission Date: 20170428
  Serious: Yes (Death)
  Sender: FDA-Public Use
  Company Number: FR-ROCHE-1902162

PATIENT
  Age: 86 Year
  Sex: Male

DRUGS (13)
  1. SINTROM [Concomitant]
     Active Substance: ACENOCOUMAROL
  2. BASDENE [Concomitant]
     Active Substance: BENZYLTHIOURACIL
  3. TEGRETOL [Concomitant]
     Active Substance: CARBAMAZEPINE
  4. TAMIFLU [Suspect]
     Active Substance: OSELTAMIVIR PHOSPHATE
     Indication: INFLUENZA
     Dosage: ADMINISTRATION AT 06:00 PM, SINGLE INTAKE
     Route: 048
     Dates: start: 20170221, end: 20170221
  5. GARDENAL [Concomitant]
     Active Substance: PHENOBARBITAL
  6. CHLORAMINOPHENE [Concomitant]
     Active Substance: CHLORAMBUCIL
  7. CEFTRIAXONE. [Suspect]
     Active Substance: CEFTRIAXONE
     Indication: RESPIRATORY TRACT INFECTION
     Dosage: SINGLE INTAKE AT 08:00 PM
     Route: 042
     Dates: start: 20170220, end: 20170220
  8. PERINDOPRIL [Concomitant]
     Active Substance: PERINDOPRIL
  9. VENTOLINE [Concomitant]
     Active Substance: ALBUTEROL
  10. FLIXOTIDE [Concomitant]
     Active Substance: FLUTICASONE PROPIONATE
  11. METRONIDAZOLE. [Suspect]
     Active Substance: METRONIDAZOLE
     Indication: RESPIRATORY TRACT INFECTION
     Dosage: AT 08:00PM ON 20-FEB,AT 00:00AM AND 08:00 ON21-FEB
     Route: 048
     Dates: start: 20170220, end: 20170221
  12. LERCANIDIPINE [Suspect]
     Active Substance: LERCANIDIPINE
     Indication: PRODUCT USED FOR UNKNOWN INDICATION
     Route: 065
  13. CARDENSIEL [Concomitant]
     Active Substance: BISOPROLOL FUMARATE

REACTIONS (1)
  - Death [Fatal]

NARRATIVE: CASE EVENT DATE: 20170221
